FAERS Safety Report 25413904 (Version 3)
Quarter: 2025Q4

REPORT INFORMATION
  Report Type: Spontaneous
  Country: US (occurrence: US)
  Receive Date: 20250609
  Receipt Date: 20251010
  Transmission Date: 20260118
  Serious: Yes (Hospitalization)
  Sender: CIPLA
  Company Number: US-CIPLA (EU) LIMITED-2025US06818

PATIENT

DRUGS (7)
  1. LENALIDOMIDE [Suspect]
     Active Substance: LENALIDOMIDE
     Indication: Plasma cell myeloma
     Dosage: 5 MILLIGRAM, QD (TAKE 01 CAPSULE 10 MG BY MOUTH ONCE DAILY FOR 21 DAYS AND THEN 07 DAYS OFF EVERY 28
     Route: 048
     Dates: start: 20250212
  2. LENALIDOMIDE [Suspect]
     Active Substance: LENALIDOMIDE
     Dosage: 5 MILLIGRAM, QD (1/DAY FOR 21 DAYS)
     Route: 048
     Dates: start: 20250314, end: 20250508
  3. LENALIDOMIDE [Suspect]
     Active Substance: LENALIDOMIDE
     Dosage: 5 MILLIGRAM, QD (TAKE 01 CAPSULE 10 MG BY MOUTH ONCE DAILY FOR 21 DAYS AND THEN 07 DAYS OFF EVERY 28
     Route: 048
     Dates: start: 20250404
  4. LENALIDOMIDE [Suspect]
     Active Substance: LENALIDOMIDE
     Dosage: 5 MILLIGRAM, QD
     Route: 048
     Dates: start: 20250502, end: 20250601
  5. LENALIDOMIDE [Suspect]
     Active Substance: LENALIDOMIDE
     Dosage: 5 MILLIGRAM, QD (TAKE 01 CAPSULE 10 MG BY MOUTH ONCE DAILY FOR 21 DAYS AND THEN 07 DAYS OFF EVERY 28
     Route: 048
     Dates: start: 20250527
  6. HYDROXYZINE HYDROCHLORIDE [Concomitant]
     Active Substance: HYDROXYZINE HYDROCHLORIDE
     Indication: Product used for unknown indication
     Dosage: UNK
     Route: 065
  7. REVLIMID [Concomitant]
     Active Substance: LENALIDOMIDE
     Indication: Product used for unknown indication
     Dosage: 5 MILLIGRAM, QD (TAKE 01 CAPSULE 05 MG BY MOUTH ONCE DAILY FOR 21 DAYS AND THEN 07 DAYS OFF EACH 28
     Route: 048
     Dates: start: 20250102

REACTIONS (2)
  - Gastritis [Recovering/Resolving]
  - White blood cell count decreased [Recovering/Resolving]

NARRATIVE: CASE EVENT DATE: 20250508
